FAERS Safety Report 23220626 (Version 2)
Quarter: 2023Q4

REPORT INFORMATION
  Report Type: Report from Study
  Country: US (occurrence: US)
  Receive Date: 20231123
  Receipt Date: 20231228
  Transmission Date: 20240110
  Serious: Yes (Other)
  Sender: FDA-Public Use
  Company Number: US-ALXN-A202310142AA

PATIENT
  Age: 66 Year
  Sex: Male

DRUGS (5)
  1. ULTOMIRIS [Suspect]
     Active Substance: RAVULIZUMAB-CWVZ
     Indication: Myasthenia gravis
     Dosage: UNK
     Route: 065
     Dates: start: 20230803
  2. MESTINON [Concomitant]
     Active Substance: PYRIDOSTIGMINE BROMIDE
     Indication: Product used for unknown indication
     Dosage: 60 MILLIGRAM, QD
     Route: 065
  3. MESTINON [Concomitant]
     Active Substance: PYRIDOSTIGMINE BROMIDE
     Dosage: 30 MILLIGRAM, QD
     Route: 065
  4. PREDNISONE [Concomitant]
     Active Substance: PREDNISONE
     Indication: Product used for unknown indication
     Dosage: 40 UNK
     Route: 065
  5. PREDNISONE [Concomitant]
     Active Substance: PREDNISONE
     Dosage: 25 UNK
     Route: 065

REACTIONS (23)
  - Chronic kidney disease [Unknown]
  - Muscle fatigue [Unknown]
  - Speech disorder [Recovering/Resolving]
  - Erythema [Unknown]
  - Abdominal pain upper [Unknown]
  - Urine odour abnormal [Unknown]
  - Dysuria [Unknown]
  - White blood cell count abnormal [Unknown]
  - Lymphocyte count decreased [Unknown]
  - Muscular weakness [Unknown]
  - Dysphagia [Unknown]
  - Photophobia [Unknown]
  - Productive cough [Not Recovered/Not Resolved]
  - Pollakiuria [Unknown]
  - Rhinorrhoea [Unknown]
  - Back pain [Unknown]
  - Myalgia [Unknown]
  - Diarrhoea [Unknown]
  - Dizziness [Recovering/Resolving]
  - Fatigue [Unknown]
  - Asthenia [Unknown]
  - Headache [Not Recovered/Not Resolved]
  - Malaise [Not Recovered/Not Resolved]

NARRATIVE: CASE EVENT DATE: 20230801
